FAERS Safety Report 6907776-X (Version None)
Quarter: 2010Q3

REPORT INFORMATION
  Report Type: 
  Country: None (occurrence: None)
  Receive Date: 20100805
  Receipt Date: 20100722
  Transmission Date: 20110219
  Serious: Yes (Other)
  Sender: FDA-Public Use
  Company Number: ES-RANBAXY-2010RR-36565

PATIENT
  Age: 50 Year
  Sex: Female

DRUGS (2)
  1. IBUPROFEN [Suspect]
     Indication: ACUTE SINUSITIS
  2. EPINEPHRINE [Suspect]

REACTIONS (2)
  - KOUNIS SYNDROME [None]
  - VENTRICULAR TACHYCARDIA [None]
